FAERS Safety Report 13553427 (Version 1)
Quarter: 2017Q2

REPORT INFORMATION
  Report Type: Spontaneous
  Country: US (occurrence: US)
  Receive Date: 20170516
  Receipt Date: 20170516
  Transmission Date: 20170830
  Serious: No
  Sender: FDA-Public Use
  Company Number: None

PATIENT
  Age: 58 Year
  Sex: Female
  Weight: 51.3 kg

DRUGS (2)
  1. ARM AND HAMMER TRULY RADIANT [Suspect]
     Active Substance: SODIUM FLUORIDE OR SODIUM MONOFLUOROPHOSPHATE
     Indication: DENTAL CLEANING
     Dates: start: 20170505, end: 20170515
  2. MOTRIN [Concomitant]
     Active Substance: IBUPROFEN

REACTIONS (2)
  - Hypoaesthesia oral [None]
  - Intranasal hypoaesthesia [None]

NARRATIVE: CASE EVENT DATE: 20170505
